FAERS Safety Report 15130458 (Version 5)
Quarter: 2023Q2

REPORT INFORMATION
  Report Type: Spontaneous
  Country: AU (occurrence: AU)
  Receive Date: 20180711
  Receipt Date: 20230503
  Transmission Date: 20230722
  Serious: Yes (Death, Hospitalization, Other)
  Sender: FDA-Public Use
  Company Number: AU-BOEHRINGERINGELHEIM-2018-BI-034710

PATIENT
  Age: 71 Year
  Sex: Male

DRUGS (4)
  1. PRADAXA [Suspect]
     Active Substance: DABIGATRAN ETEXILATE MESYLATE
     Indication: Product used for unknown indication
     Route: 065
  2. TELMISARTAN [Suspect]
     Active Substance: TELMISARTAN
     Indication: Product used for unknown indication
     Route: 065
  3. ATORVASTATIN [Concomitant]
     Active Substance: ATORVASTATIN
     Indication: Product used for unknown indication
     Route: 065
  4. METOPROLOL [Concomitant]
     Active Substance: METOPROLOL
     Indication: Product used for unknown indication
     Route: 065

REACTIONS (18)
  - Death [Fatal]
  - Gastrointestinal haemorrhage [Unknown]
  - Acute kidney injury [Unknown]
  - Coagulopathy [Unknown]
  - Toxicity to various agents [Unknown]
  - Haemodynamic instability [Unknown]
  - Coagulopathy [Unknown]
  - Tubulointerstitial nephritis [Recovered/Resolved]
  - Drug ineffective [Unknown]
  - Decreased appetite [Unknown]
  - Abdominal tenderness [Unknown]
  - Melaena [Unknown]
  - Anaemia [Unknown]
  - Hypotension [Unknown]
  - Haemoglobin decreased [Unknown]
  - Tachycardia [Unknown]
  - Lethargy [Unknown]
  - Abdominal pain [Unknown]
